FAERS Safety Report 21332228 (Version 1)
Quarter: 2022Q3

REPORT INFORMATION
  Report Type: Spontaneous
  Country: CN (occurrence: CN)
  Receive Date: 20220914
  Receipt Date: 20220914
  Transmission Date: 20221027
  Serious: Yes (Hospitalization)
  Sender: FDA-Public Use
  Company Number: CN-ELI_LILLY_AND_COMPANY-CN202209000986

PATIENT
  Age: 72 Year
  Sex: Male
  Weight: 45 kg

DRUGS (2)
  1. HUMALOG MIX75/25 [Suspect]
     Active Substance: INSULIN LISPRO
     Indication: Diabetes mellitus
     Dosage: 6 U, EACH MORNING
     Route: 058
     Dates: start: 2015
  2. HUMALOG MIX75/25 [Suspect]
     Active Substance: INSULIN LISPRO
     Dosage: 4 U, DAILY
     Route: 058
     Dates: start: 2015

REACTIONS (3)
  - Asthma [Recovering/Resolving]
  - Hypoglycaemia [Unknown]
  - Wrong dosage formulation [Unknown]
